FAERS Safety Report 6915590-4 (Version None)
Quarter: 2010Q3

REPORT INFORMATION
  Report Type: 
  Country: None (occurrence: None)
  Receive Date: 20100804
  Receipt Date: 20100719
  Transmission Date: 20110219
  Serious: Yes (Hospitalization)
  Sender: FDA-Public Use
  Company Number: 2010AP001494

PATIENT
  Age: 85 Year
  Sex: Female

DRUGS (13)
  1. CLOPIDOGREL BISULFATE [Suspect]
     Dosage: 75 MG; PO
     Route: 048
     Dates: start: 20100504
  2. RANITIDINE HYDROCHLORIDE [Suspect]
     Dosage: 150 MG; BID; PO
     Route: 048
     Dates: start: 20100504
  3. STRONTIUM RANELATE (STRONTIUM RANELATE) [Suspect]
     Indication: OSTEOPOROSIS
     Dosage: 2 GM; QD; PO
     Route: 048
     Dates: start: 20100504, end: 20100526
  4. CALCIUM CARBONATE [Concomitant]
  5. COLECALCIFEROL (COLECALCIFEROL) [Concomitant]
  6. CALCITRIOL [Concomitant]
  7. FELODIPINE [Concomitant]
  8. FERROUS SULFATE TAB [Concomitant]
  9. FUROSEMIDE [Concomitant]
  10. LOSARTAN (LOSARTAN) [Concomitant]
  11. PARPXETINE (PAROXETINE) [Concomitant]
  12. PROPRANOLOL [Concomitant]
  13. VITAMINS NOS (VITAMINS NOS) [Concomitant]

REACTIONS (3)
  - ANGIOEDEMA [None]
  - PRURITUS [None]
  - RASH GENERALISED [None]
